FAERS Safety Report 10662441 (Version 1)
Quarter: 2014Q4

REPORT INFORMATION
  Report Type: Spontaneous
  Country: US (occurrence: US)
  Receive Date: 20141218
  Receipt Date: 20141218
  Transmission Date: 20150529
  Serious: Yes (Other)
  Sender: FDA-Public Use
  Company Number: US-TEVA-529689USA

PATIENT
  Age: 46 Year
  Sex: Female
  Weight: 60.38 kg

DRUGS (1)
  1. PARAGARD T380A [Suspect]
     Active Substance: COPPER
     Indication: CONTRACEPTION
     Route: 015
     Dates: end: 20141210

REACTIONS (5)
  - Metrorrhagia [Unknown]
  - Device breakage [Not Recovered/Not Resolved]
  - Coital bleeding [Unknown]
  - Device dislocation [Recovered/Resolved]
  - Embedded device [Not Recovered/Not Resolved]

NARRATIVE: CASE EVENT DATE: 20141210
